FAERS Safety Report 17229597 (Version 10)
Quarter: 2020Q2

REPORT INFORMATION
  Report Type: Report from Study
  Country: KR (occurrence: KR)
  Receive Date: 20200103
  Receipt Date: 20200609
  Transmission Date: 20200713
  Serious: Yes (Hospitalization)
  Sender: FDA-Public Use
  Company Number: KR-PFIZER INC-2019549014

PATIENT
  Age: 67 Year
  Sex: Male
  Weight: 68 kg

DRUGS (7)
  1. AVELUMAB [Suspect]
     Active Substance: AVELUMAB
     Indication: HEPATIC ANGIOSARCOMA
     Dosage: 705 MG, CYCLIC
     Route: 042
     Dates: start: 20190807
  2. AVELUMAB [Suspect]
     Active Substance: AVELUMAB
     Dosage: 690 MG, CYCLIC
     Route: 042
     Dates: start: 20191118, end: 20191118
  3. PACLITAXEL. [Suspect]
     Active Substance: PACLITAXEL
     Dosage: 119 MG, CYCLIC
     Dates: end: 20191202
  4. AVELUMAB [Suspect]
     Active Substance: AVELUMAB
     Dosage: 680.5 MG, CYCLIC
     Route: 042
     Dates: start: 20191223
  5. PACLITAXEL. [Suspect]
     Active Substance: PACLITAXEL
     Indication: HEPATIC ANGIOSARCOMA
     Dosage: 148 MG, CYCLIC
     Dates: start: 20190807
  6. PACLITAXEL. [Suspect]
     Active Substance: PACLITAXEL
     Dosage: 119 MG, CYCLIC
     Dates: start: 20191223
  7. PREGABALIN. [Suspect]
     Active Substance: PREGABALIN
     Indication: NEUROPATHY PERIPHERAL
     Dosage: 75 MG
     Dates: start: 20191212, end: 20191216

REACTIONS (2)
  - Vasculitis [Recovered/Resolved with Sequelae]
  - Febrile neutropenia [Recovered/Resolved]

NARRATIVE: CASE EVENT DATE: 20191211
